FAERS Safety Report 8811711 (Version 4)
Quarter: 2013Q2

REPORT INFORMATION
  Report Type: Spontaneous
  Country: DE (occurrence: None)
  Receive Date: 20120924
  Receipt Date: 20130503
  Transmission Date: 20140414
  Serious: Yes (Life-Threatening, Hospitalization, Other)
  Sender: FDA-Public Use
  Company Number: AUR-APL-2012-04078

PATIENT
  Age: 82 Year
  Sex: Female
  Weight: 67 kg

DRUGS (8)
  1. METFORMIN (METFORMIN) [Suspect]
     Indication: TYPE 2 DIABETES MELLITUS
     Dosage: 2500 MG (500 MG, 5 IN 1 1D)ORAL
     Route: 048
     Dates: start: 20100521
  2. ASS [Concomitant]
     Dosage: 12.5 MG (6.25MG , 2 IN 1D) ORAL
  3. AMLODIPINE (AMLODIPINE) [Concomitant]
  4. TORASEMIDE (TORASEMIDE) [Concomitant]
  5. RAMIPRIL (RAMIPRIL) [Concomitant]
  6. CLONIDINE (CLONIDINE) [Concomitant]
  7. JANUVIA (SITAGLIPTIN PHOSPHATE) [Concomitant]
  8. CARVEDILOL (CARVEDILOL) [Suspect]
     Indication: PRODUCT USED FOR UNKNOWN INDICATION
     Dosage: 12.5 MG (6.25 MG, 2 IN 1 D), ORAL
     Route: 048
     Dates: start: 20100512

REACTIONS (7)
  - Lactic acidosis [None]
  - Renal failure acute [None]
  - Hypotension [None]
  - Hypothermia [None]
  - Drug level above therapeutic [None]
  - Disorientation [None]
  - Haemodialysis [None]
